FAERS Safety Report 11820555 (Version 2)
Quarter: 2016Q1

REPORT INFORMATION
  Report Type: Spontaneous
  Country: US (occurrence: US)
  Receive Date: 20151210
  Receipt Date: 20160202
  Transmission Date: 20160525
  Serious: No
  Sender: FDA-Public Use
  Company Number: US-JNJFOC-20141119651

PATIENT
  Age: 63 Year
  Sex: Female

DRUGS (1)
  1. IMBRUVICA [Suspect]
     Active Substance: IBRUTINIB
     Indication: MANTLE CELL LYMPHOMA
     Route: 048
     Dates: start: 20140207

REACTIONS (7)
  - Skin fissures [Not Recovered/Not Resolved]
  - Fatigue [Not Recovered/Not Resolved]
  - Nail growth abnormal [Not Recovered/Not Resolved]
  - Oral herpes [Not Recovered/Not Resolved]
  - Pain [Not Recovered/Not Resolved]
  - Onychoclasis [Not Recovered/Not Resolved]
  - Muscle spasms [Not Recovered/Not Resolved]

NARRATIVE: CASE EVENT DATE: 201407
